FAERS Safety Report 13516756 (Version 1)
Quarter: 2017Q2

REPORT INFORMATION
  Report Type: Spontaneous
  Country: US (occurrence: US)
  Receive Date: 20170504
  Receipt Date: 20170504
  Transmission Date: 20170830
  Serious: Yes (Disabling, Other)
  Sender: FDA-Public Use
  Company Number: None

PATIENT
  Age: 46 Year
  Sex: Female
  Weight: 70.2 kg

DRUGS (15)
  1. LISINOPRIL. [Concomitant]
     Active Substance: LISINOPRIL
  2. JUICE PLUS NUTRIENTS [Concomitant]
  3. MULTI [Concomitant]
  4. VALERIAN [Concomitant]
     Active Substance: VALERIAN
  5. VITAMIN D [Concomitant]
     Active Substance: CHOLECALCIFEROL
  6. HAWTHORNE OIL [Concomitant]
  7. A [Concomitant]
  8. COQ10 [Concomitant]
     Active Substance: UBIDECARENONE
  9. MISCELLANOUS NUTRIENTS [Concomitant]
  10. BUTRANS [Suspect]
     Active Substance: BUPRENORPHINE
     Indication: DRUG USE DISORDER
     Dosage: OTHER STRENGTH:MCG;QUANTITY:2 PATCH(ES);?
     Route: 062
  11. VITAMIN C [Concomitant]
     Active Substance: ASCORBIC ACID
  12. HEMP OIL [Concomitant]
     Active Substance: CANNABIS SATIVA SEED OIL
  13. FLAX SEED [Concomitant]
     Active Substance: FLAX SEED
  14. L-LYSINE [Concomitant]
     Active Substance: LYSINE
  15. EVENING PRIMROSE OIL [Concomitant]
     Active Substance: EVENING PRIMROSE OIL

REACTIONS (19)
  - Muscle disorder [None]
  - Deafness [None]
  - Muscle spasms [None]
  - Pain [None]
  - Headache [None]
  - Cognitive disorder [None]
  - Pyrexia [None]
  - Emotional disorder [None]
  - Insomnia [None]
  - Suicidal ideation [None]
  - Mental disorder [None]
  - Dizziness [None]
  - Blood pressure increased [None]
  - Tenderness [None]
  - Tinnitus [None]
  - Migraine [None]
  - Abdominal pain [None]
  - Blindness [None]
  - Decreased appetite [None]

NARRATIVE: CASE EVENT DATE: 20170201
